FAERS Safety Report 6509956-4 (Version None)
Quarter: 2009Q4

REPORT INFORMATION
  Report Type: 
  Country: None (occurrence: None)
  Receive Date: 20091222
  Receipt Date: 20091216
  Transmission Date: 20100525
  Serious: Yes (Hospitalization, Other)
  Sender: FDA-Public Use
  Company Number: PHHY2009JP09931

PATIENT
  Sex: Male
  Weight: 10 kg

DRUGS (10)
  1. SIMULECT [Suspect]
     Indication: RENAL TRANSPLANT
     Dosage: 10 MG
     Route: 042
     Dates: start: 20040316, end: 20040316
  2. SIMULECT [Suspect]
     Dosage: 10 MG
     Route: 042
     Dates: start: 20040320, end: 20040320
  3. BREDININ [Suspect]
     Indication: RENAL TRANSPLANT
     Dosage: 80 MG
     Route: 048
     Dates: start: 20040315, end: 20040503
  4. MEDROL [Suspect]
     Indication: RENAL TRANSPLANT
     Dosage: 12 MG
     Route: 048
     Dates: start: 20040315
  5. PROGRAF [Suspect]
     Indication: RENAL TRANSPLANT
     Dosage: 0.5 MG
     Route: 042
     Dates: start: 20040315, end: 20040328
  6. PROGRAF [Suspect]
     Dosage: 5 MG
     Route: 048
     Dates: start: 20040320
  7. CELLCEPT [Concomitant]
     Indication: RENAL TRANSPLANT
     Dosage: 600 MG
     Route: 048
     Dates: end: 20070727
  8. DENOSINE [Concomitant]
     Dosage: 100 MG
     Route: 042
     Dates: start: 20040421, end: 20040607
  9. MODACIN [Concomitant]
     Dosage: 1200 MG
     Route: 042
     Dates: start: 20040402, end: 20040405
  10. SAWACILLIN [Concomitant]
     Dosage: 250 MG
     Route: 048
     Dates: start: 20040405, end: 20040409

REACTIONS (3)
  - CHRONIC ALLOGRAFT NEPHROPATHY [None]
  - CYTOMEGALOVIRUS INFECTION [None]
  - PYELONEPHRITIS [None]
